FAERS Safety Report 18808867 (Version 1)
Quarter: 2021Q1

REPORT INFORMATION
  Report Type: Spontaneous
  Country: PL (occurrence: PL)
  Receive Date: 20210129
  Receipt Date: 20210129
  Transmission Date: 20210419
  Serious: Yes (Other)
  Sender: FDA-Public Use
  Company Number: PL-SUN PHARMACEUTICAL INDUSTRIES LTD-2021R1-277975

PATIENT
  Age: 84 Year
  Sex: Male
  Weight: 83 kg

DRUGS (4)
  1. PERINDOPRIL [Suspect]
     Active Substance: PERINDOPRIL
     Indication: HYPERTENSION
     Dosage: 2.5 MILLIGRAM, DAILY
     Route: 065
  2. INDAPAMIDE. [Suspect]
     Active Substance: INDAPAMIDE
     Indication: HYPERTENSION
     Dosage: 1.25 MILLIGRAM, DAILY (1 TABLET)
     Route: 065
  3. METOPROLOL. [Suspect]
     Active Substance: METOPROLOL
     Dosage: 50 MILLIGRAM, DAILY
     Route: 065
  4. METOPROLOL. [Suspect]
     Active Substance: METOPROLOL
     Indication: ARRHYTHMIA
     Dosage: 25 MILLIGRAM, DAILY
     Route: 065

REACTIONS (3)
  - Syncope [Unknown]
  - Seizure [Unknown]
  - Hypotension [Recovered/Resolved]
